FAERS Safety Report 7434420-8 (Version None)
Quarter: 2011Q2

REPORT INFORMATION
  Report Type: 
  Country: None (occurrence: None)
  Receive Date: 20110425
  Receipt Date: 20110419
  Transmission Date: 20111010
  Serious: Yes (Death)
  Sender: FDA-Public Use
  Company Number: US-BRISTOL-MYERS SQUIBB COMPANY-15688989

PATIENT

DRUGS (2)
  1. IRINOTECAN HCL [Suspect]
     Indication: OESOPHAGEAL CARCINOMA
     Dosage: DAYS 1 AND 8 FOR FOUR TOTAL CYCLES.
  2. CISPLATIN [Suspect]
     Indication: OESOPHAGEAL CARCINOMA
     Dosage: DAYS 1 AND 8 FOR FOUR TOTAL CYCLES.

REACTIONS (1)
  - PULMONARY EMBOLISM [None]
